FAERS Safety Report 20560718 (Version 3)
Quarter: 2022Q1

REPORT INFORMATION
  Report Type: Report from Study
  Country: IT (occurrence: IT)
  Receive Date: 20220307
  Receipt Date: 20220315
  Transmission Date: 20220423
  Serious: Yes (Life-Threatening)
  Sender: FDA-Public Use
  Company Number: IT-CELGENE-ITA-20220300881

PATIENT
  Age: 1 Year
  Sex: Female
  Weight: 11 kg

DRUGS (12)
  1. LISOCABTAGENE MARALEUCEL [Suspect]
     Active Substance: LISOCABTAGENE MARALEUCEL
     Indication: Acute lymphocytic leukaemia
     Dosage: 11.8X10^4 (CD8+,0.6ML) AND 33.3X10^4 (CD4+,0.23) CAR+T CELLS/ML/KG
     Route: 041
     Dates: start: 20220301, end: 20220301
  2. FLUDARABINE [Suspect]
     Active Substance: FLUDARABINE PHOSPHATE
     Indication: Acute lymphocytic leukaemia
     Dosage: 15 MILLIGRAM
     Route: 041
     Dates: start: 20220222, end: 20220224
  3. CYCLOPHOSPHAMIDE [Suspect]
     Active Substance: CYCLOPHOSPHAMIDE
     Indication: Acute lymphocytic leukaemia
     Dosage: 150 MILLIGRAM
     Route: 041
     Dates: start: 20220222, end: 20220224
  4. ACETAMINOPHEN [Concomitant]
     Active Substance: ACETAMINOPHEN
     Indication: Premedication
     Route: 041
     Dates: start: 20220301, end: 20220301
  5. CHLORPHENIRAMINE [Concomitant]
     Active Substance: CHLORPHENIRAMINE
     Indication: Infusion related reaction
     Route: 041
     Dates: start: 20220301, end: 20220301
  6. CHLORPHENIRAMINE [Concomitant]
     Active Substance: CHLORPHENIRAMINE
     Indication: Premedication
     Route: 041
     Dates: start: 20220301, end: 20220301
  7. Physiologic solution + glucosate solution + G5K40 [Concomitant]
     Indication: Fluid replacement
     Dosage: PHYSIOLOGIC SOLUTION 500 ML + GLUCOSATE SOLUTION 5% 250 ML + G5K40 250 ML IN 24 HOURS
     Route: 041
     Dates: start: 2022, end: 2022
  8. LEVETIRACETAM [Concomitant]
     Active Substance: LEVETIRACETAM
     Indication: Product used for unknown indication
     Dosage: 300 MILLIGRAM
     Route: 041
  9. ACYCLOVIR [Concomitant]
     Active Substance: ACYCLOVIR
     Indication: Product used for unknown indication
     Dosage: 360 MILLIGRAM
     Route: 041
  10. TRAMADOL [Concomitant]
     Active Substance: TRAMADOL
     Indication: Product used for unknown indication
     Dosage: 20 MILLIGRAM
     Route: 041
  11. OMEPRAZOLE [Concomitant]
     Active Substance: OMEPRAZOLE
     Indication: Product used for unknown indication
     Dosage: 10 MILLIGRAM
     Route: 041
  12. URSODIOL [Concomitant]
     Active Substance: URSODIOL
     Indication: Product used for unknown indication
     Dosage: 300 MILLIGRAM
     Route: 048

REACTIONS (1)
  - Infusion related reaction [Recovered/Resolved]

NARRATIVE: CASE EVENT DATE: 20220301
